FAERS Safety Report 4326299-8 (Version None)
Quarter: 2004Q1

REPORT INFORMATION
  Report Type: 
  Country: None (occurrence: None)
  Receive Date: 20040325
  Receipt Date: 20031105
  Transmission Date: 20041129
  Serious: No
  Sender: FDA-Public Use
  Company Number: US054020

PATIENT
  Age: 64 Year
  Sex: Male

DRUGS (4)
  1. NEULASTA [Suspect]
     Indication: CHEMOTHERAPY
     Dosage: 6 MG, AFTER CHEMO, SC
     Route: 058
     Dates: start: 20030829
  2. FLUIDARBINE PHOSPHATE [Concomitant]
  3. CYCLOPHOSPHAMIDE [Concomitant]
  4. RITUXIMAB [Concomitant]

REACTIONS (2)
  - PRURITUS [None]
  - RASH [None]
